FAERS Safety Report 15232613 (Version 1)
Quarter: 2018Q3

REPORT INFORMATION
  Report Type: Spontaneous
  Country: US (occurrence: US)
  Receive Date: 20180802
  Receipt Date: 20180802
  Transmission Date: 20181010
  Serious: No
  Sender: FDA-Public Use
  Company Number: US-MYLANLABS-2018M1053386

PATIENT
  Sex: Male

DRUGS (1)
  1. FENTANYL TRANSDERMAL SYSTEM [Suspect]
     Active Substance: FENTANYL
     Indication: PAIN
     Dosage: 75 ?G, Q3D (EVERY 72 HOURS)
     Route: 062
     Dates: start: 20180601

REACTIONS (3)
  - No adverse event [Unknown]
  - Wrong technique in product usage process [Recovering/Resolving]
  - Product adhesion issue [Unknown]
